FAERS Safety Report 9308520 (Version 2)
Quarter: 2013Q2

REPORT INFORMATION
  Report Type: Report from Study
  Country: US (occurrence: US)
  Receive Date: 20130524
  Receipt Date: 20130606
  Transmission Date: 20140414
  Serious: Yes (Death, Other)
  Sender: FDA-Public Use
  Company Number: US-ACTELION-A-US2013-79576

PATIENT
  Age: 32 Year
  Sex: Female

DRUGS (4)
  1. VELETRI [Suspect]
     Indication: PULMONARY ARTERIAL HYPERTENSION
     Dosage: 15 NG/KG, PER MIN
     Route: 042
     Dates: start: 20121031, end: 20130325
  2. FLOLAN [Suspect]
     Dosage: UNK
     Dates: start: 2012
  3. FLOLAN [Suspect]
     Dosage: UNK
     Dates: start: 200608, end: 2012
  4. COUMADIN [Concomitant]

REACTIONS (4)
  - Treatment noncompliance [Fatal]
  - Drug ineffective [Not Recovered/Not Resolved]
  - Condition aggravated [Not Recovered/Not Resolved]
  - Dyspnoea [Not Recovered/Not Resolved]
